FAERS Safety Report 5061298-2 (Version None)
Quarter: 2006Q3

REPORT INFORMATION
  Report Type: 
  Country: None (occurrence: None)
  Receive Date: 20060719
  Receipt Date: 20060719
  Transmission Date: 20061208
  Serious: Yes (Hospitalization)
  Sender: FDA-Public Use
  Company Number: None

PATIENT
  Age: 79 Year
  Sex: Male
  Weight: 85 kg

DRUGS (2)
  1. LASIX [Suspect]
     Dosage: LASIX 40 MG BID IV
     Route: 042
     Dates: start: 20010101, end: 20060501
  2. LASIX [Suspect]
     Dosage: LASIX 40 MG BID IV
     Route: 042
     Dates: start: 20060501, end: 20060502

REACTIONS (8)
  - APNOEIC ATTACK [None]
  - BLOOD AMYLASE INCREASED [None]
  - BLOOD CREATININE INCREASED [None]
  - BLOOD UREA INCREASED [None]
  - CARDIAC FAILURE CONGESTIVE [None]
  - CHOLECYSTITIS [None]
  - HICCUPS [None]
  - LIPASE INCREASED [None]
